FAERS Safety Report 18723278 (Version 1)
Quarter: 2021Q1

REPORT INFORMATION
  Report Type: Spontaneous
  Country: US (occurrence: US)
  Receive Date: 20210110
  Receipt Date: 20210110
  Transmission Date: 20210419
  Serious: Yes (Hospitalization)
  Sender: FDA-Public Use
  Company Number: None

PATIENT
  Age: 94 Year
  Sex: Female
  Weight: 72 kg

DRUGS (1)
  1. BAMLANIVIMAB. [Suspect]
     Active Substance: BAMLANIVIMAB
     Indication: COVID-19
     Dosage: ?          OTHER FREQUENCY:ONCE IV OVER 60MIN;?
     Route: 041

REACTIONS (5)
  - Hypoacusis [None]
  - Lacunar infarction [None]
  - Aphasia [None]
  - Nerve stimulation test abnormal [None]
  - Mental status changes [None]

NARRATIVE: CASE EVENT DATE: 20210109
